FAERS Safety Report 23175945 (Version 4)
Quarter: 2023Q4

REPORT INFORMATION
  Report Type: Report from Study
  Country: US (occurrence: US)
  Receive Date: 20231113
  Receipt Date: 20231121
  Transmission Date: 20240110
  Serious: No
  Sender: FDA-Public Use
  Company Number: US-002147023-NVSC2023US238834

PATIENT
  Sex: Female

DRUGS (1)
  1. COSENTYX [Suspect]
     Active Substance: SECUKINUMAB
     Indication: Psoriasis
     Dosage: UNK
     Route: 065

REACTIONS (11)
  - Psoriasis [Unknown]
  - Dry skin [Unknown]
  - Skin exfoliation [Unknown]
  - Pruritus [Unknown]
  - Skin lesion [Unknown]
  - Skin discolouration [Unknown]
  - Skin irritation [Unknown]
  - Lichenoid keratosis [Unknown]
  - Lichen planus [Unknown]
  - Dermatitis [Unknown]
  - Therapeutic product effect incomplete [Unknown]
